FAERS Safety Report 6371248-4 (Version None)
Quarter: 2009Q3

REPORT INFORMATION
  Report Type: 
  Country: None (occurrence: None)
  Receive Date: 20090923
  Receipt Date: 20070831
  Transmission Date: 20100115
  Serious: No
  Sender: FDA-Public Use
  Company Number: US-ASTRAZENECA-2006UW27825

PATIENT
  Age: 14300 Day
  Sex: Male
  Weight: 90.7 kg

DRUGS (10)
  1. SEROQUEL [Suspect]
     Dosage: 100 MG - 200 MG
     Route: 048
     Dates: start: 20010301
  2. SEROQUEL [Suspect]
     Route: 048
     Dates: end: 20060201
  3. FAMOTIDINE [Concomitant]
     Route: 065
  4. TEMAZEPAM [Concomitant]
     Route: 065
  5. AMBIEN [Concomitant]
     Dosage: 5 MG, 10 MG, 12.5 MG.
     Route: 065
  6. CLARITIN [Concomitant]
     Route: 065
  7. TRIZIVIR [Concomitant]
     Dosage: 300/150/300 MG
     Route: 065
  8. ALBUTEROL [Concomitant]
     Route: 065
  9. FLUTICASONE [Concomitant]
     Dosage: 50 UG SPRAY.
     Route: 065
  10. ZYRTEC-D 12 HOUR [Concomitant]
     Route: 065

REACTIONS (21)
  - ANAL FISSURE [None]
  - ASTHMA [None]
  - BRONCHITIS CHRONIC [None]
  - CONJUNCTIVITIS [None]
  - DERMATITIS [None]
  - DYSPNOEA [None]
  - EAR PAIN [None]
  - EPISTAXIS [None]
  - EYE PAIN [None]
  - HAEMORRHOIDS [None]
  - HYPERGLYCAEMIA [None]
  - MALAISE [None]
  - MUSCULOSKELETAL PAIN [None]
  - PRODUCTIVE COUGH [None]
  - PYREXIA [None]
  - RASH [None]
  - RESPIRATORY TRACT CONGESTION [None]
  - SUBCUTANEOUS ABSCESS [None]
  - TEMPOROMANDIBULAR JOINT SYNDROME [None]
  - URETHRITIS CHLAMYDIAL [None]
  - VIRAL INFECTION [None]
